FAERS Safety Report 25165879 (Version 3)
Quarter: 2025Q2

REPORT INFORMATION
  Report Type: Spontaneous
  Country: PL (occurrence: PL)
  Receive Date: 20250407
  Receipt Date: 20250522
  Transmission Date: 20250717
  Serious: Yes (Other)
  Sender: BAUSCH AND LOMB
  Company Number: PL-BAUSCH-BL-2025-004550

PATIENT
  Age: 31 Year
  Sex: Female

DRUGS (2)
  1. HYDROCORTISONE [Suspect]
     Active Substance: HYDROCORTISONE
     Indication: Addison^s disease
     Route: 065
     Dates: start: 2018, end: 2023
  2. AZATHIOPRINE [Concomitant]
     Active Substance: AZATHIOPRINE
     Indication: Crohn^s disease
     Dates: start: 2022

REACTIONS (3)
  - Uterine prolapse [Recovered/Resolved]
  - Rectal prolapse [Recovered/Resolved]
  - Disease progression [Recovered/Resolved]

NARRATIVE: CASE EVENT DATE: 20180101
